FAERS Safety Report 18915838 (Version 1)
Quarter: 2021Q1

REPORT INFORMATION
  Report Type: Spontaneous
  Country: US (occurrence: US)
  Receive Date: 20210219
  Receipt Date: 20210219
  Transmission Date: 20210420
  Serious: Yes (Hospitalization)
  Sender: FDA-Public Use
  Company Number: None

PATIENT
  Age: 56 Year
  Sex: Male

DRUGS (13)
  1. HUMIRA [Suspect]
     Active Substance: ADALIMUMAB
     Indication: PSORIASIS
     Dosage: ?          OTHER FREQUENCY:EVERY 14 DAYS;?
     Dates: start: 20201028
  2. ADDERALL [Concomitant]
     Active Substance: AMPHETAMINE ASPARTATE\AMPHETAMINE SULFATE\DEXTROAMPHETAMINE SACCHARATE\DEXTROAMPHETAMINE SULFATE
  3. ASPIRIN. [Concomitant]
     Active Substance: ASPIRIN
  4. BUPROPION. [Concomitant]
     Active Substance: BUPROPION
  5. CELECOXIB. [Concomitant]
     Active Substance: CELECOXIB
  6. HYDROCO/APAP [Concomitant]
     Active Substance: ACETAMINOPHEN\HYDROCODONE
  7. ESCITALOPRAM [Concomitant]
     Active Substance: ESCITALOPRAM OXALATE
  8. CEFADROXIL. [Concomitant]
     Active Substance: CEFADROXIL
  9. HUMIRA [Concomitant]
     Active Substance: ADALIMUMAB
  10. STIMULANT [Concomitant]
     Active Substance: UNSPECIFIED INGREDIENT
  11. ACETAMIN [Concomitant]
     Active Substance: ACETAMINOPHEN
  12. DEXTROAMPHET SACCHARAT, AMPHET ASPARTATE, DEXTROAMPHET SULFATE AND AMPHET SULFAT [Concomitant]
     Active Substance: AMPHETAMINE ASPARTATE\AMPHETAMINE SULFATE\DEXTROAMPHETAMINE SACCHARATE\DEXTROAMPHETAMINE SULFATE
  13. HYDROCOMORPHON [Concomitant]

REACTIONS (2)
  - Hip arthroplasty [None]
  - Intentional dose omission [None]

NARRATIVE: CASE EVENT DATE: 20210204
